FAERS Safety Report 12986625 (Version 1)
Quarter: 2016Q4

REPORT INFORMATION
  Report Type: Spontaneous
  Country: US (occurrence: US)
  Receive Date: 20161129
  Receipt Date: 20161129
  Transmission Date: 20170207
  Serious: Yes (Hospitalization)
  Sender: FDA-Public Use
  Company Number: None

PATIENT
  Age: 52 Year
  Sex: Female

DRUGS (1)
  1. IBRANCE [Suspect]
     Active Substance: PALBOCICLIB
     Indication: BREAST CANCER FEMALE
     Route: 048
     Dates: start: 20161108, end: 20161129

REACTIONS (8)
  - Burning sensation [None]
  - Paraesthesia [None]
  - Renal pain [None]
  - Drug prescribing error [None]
  - Peripheral swelling [None]
  - Hypoaesthesia [None]
  - Haemoglobin decreased [None]
  - White blood cell count decreased [None]

NARRATIVE: CASE EVENT DATE: 20161128
